FAERS Safety Report 5771737-7 (Version None)
Quarter: 2008Q2

REPORT INFORMATION
  Report Type: 
  Country: None (occurrence: None)
  Receive Date: 20080613
  Receipt Date: 20080605
  Transmission Date: 20081010
  Serious: Yes (Death, Hospitalization)
  Sender: FDA-Public Use
  Company Number: IT-NOVOPROD-274749

PATIENT
  Age: 86 Year
  Sex: Female

DRUGS (1)
  1. LEVEMIR [Suspect]
     Indication: DRUG USE FOR UNKNOWN INDICATION
     Dosage: 8 IU, UNK
     Dates: start: 20071107, end: 20080413

REACTIONS (1)
  - DIABETIC COMPLICATION [None]
